FAERS Safety Report 21651759 (Version 1)
Quarter: 2022Q4

REPORT INFORMATION
  Report Type: Spontaneous
  Country: US (occurrence: US)
  Receive Date: 20221128
  Receipt Date: 20221128
  Transmission Date: 20230112
  Serious: Yes (Hospitalization, Other)
  Sender: FDA-Public Use
  Company Number: US-PFIZER INC-202201324931

PATIENT
  Age: 78 Year
  Sex: Female
  Weight: 75.3 kg

DRUGS (1)
  1. AMINOPHYLLINE [Suspect]
     Active Substance: AMINOPHYLLINE
     Indication: Chest pain
     Dosage: UNK
     Dates: start: 20221027

REACTIONS (3)
  - Pneumonia [Unknown]
  - Recalled product administered [Unknown]
  - Off label use [Unknown]
